FAERS Safety Report 4338803-4 (Version None)
Quarter: 2004Q2

REPORT INFORMATION
  Report Type: 
  Country: None (occurrence: None)
  Receive Date: 20040409
  Receipt Date: 20040330
  Transmission Date: 20050107
  Serious: Yes (Death, Hospitalization)
  Sender: FDA-Public Use
  Company Number: JP-JNJFOC-20040306396

PATIENT
  Age: 44 Year
  Sex: Male

DRUGS (9)
  1. OFLOXACIN [Suspect]
     Dosage: 400 MG, INTRAVENOUS
     Route: 042
     Dates: start: 20040129, end: 20040207
  2. GANCICLOVIR SODIUM [Suspect]
     Dosage: 900 MG, INTRAVENOUS
     Route: 042
     Dates: start: 20040121, end: 20040207
  3. CLAVENTIN (CLAVENTIN) [Suspect]
     Dosage: 15 G, INTRAVENOUS
     Route: 042
     Dates: start: 20040121, end: 20040207
  4. NEORAL [Suspect]
     Dosage: 100 MG, ORAL
     Route: 048
     Dates: start: 20031219, end: 20040222
  5. CANCIDAS [Suspect]
     Dosage: 50 MG, INTRAVENOUS
     Route: 042
     Dates: start: 20040121, end: 20040207
  6. VORICONAZOLE (VORICONAZOLE) [Suspect]
     Dosage: 400 MG, INTRAVENOUS
     Route: 042
     Dates: start: 20040105, end: 20040210
  7. OFLOXACIN [Suspect]
     Dates: start: 20031219, end: 20031226
  8. VANCOMYCIN [Concomitant]
  9. AMBISOME [Concomitant]

REACTIONS (8)
  - ACIDOSIS [None]
  - ASPERGILLOSIS [None]
  - ENCEPHALOPATHY [None]
  - MULTI-ORGAN FAILURE [None]
  - MUSCLE RIGIDITY [None]
  - MYOCLONUS [None]
  - RENAL FAILURE [None]
  - TREMOR [None]
